FAERS Safety Report 4578978-5 (Version None)
Quarter: 2005Q1

REPORT INFORMATION
  Report Type: 
  Country: None (occurrence: None)
  Receive Date: 20050118
  Receipt Date: 20031201
  Transmission Date: 20050727
  Serious: No
  Sender: FDA-Public Use
  Company Number: 352921

PATIENT
  Age: 14 Year
  Sex: Male

DRUGS (2)
  1. CEFTRIAXONE [Suspect]
     Indication: DRUG USE FOR UNKNOWN INDICATION
     Dosage: 4 GRAM DAILY INTRAVENOUS
     Route: 042
  2. METRONIDAZOLE [Concomitant]

REACTIONS (2)
  - GALLBLADDER DISORDER [None]
  - NEPHROLITHIASIS [None]
